FAERS Safety Report 17875473 (Version 1)
Quarter: 2020Q2

REPORT INFORMATION
  Report Type: Report from Study
  Country: US (occurrence: US)
  Receive Date: 20200609
  Receipt Date: 20200609
  Transmission Date: 20200714
  Serious: Yes (Other)
  Sender: FDA-Public Use
  Company Number: US-PFIZER INC-2020219273

PATIENT
  Sex: Female

DRUGS (3)
  1. MISOPROSTOL. [Suspect]
     Active Substance: MISOPROSTOL
     Dosage: 400 MCG EVERY THREE HOURS UNTIL EXPULSION OF FETUS, OR EVERY THREE HOURS FOR 12 HOURS (FIVE DOSES)
     Route: 060
  2. MISOPROSTOL. [Suspect]
     Active Substance: MISOPROSTOL
     Indication: ABORTION
     Dosage: 800 UG
     Route: 060
  3. MIFEPRISTONE [Suspect]
     Active Substance: MIFEPRISTONE
     Indication: ABORTION INDUCED
     Dosage: 200 MG (24-48 H PRIOR TO THE FIRST DOSE OF MISOPROSTOL)
     Route: 048

REACTIONS (2)
  - Seizure [Unknown]
  - Hypotension [Unknown]
